FAERS Safety Report 6555618-7 (Version None)
Quarter: 2010Q1

REPORT INFORMATION
  Report Type: 
  Country: None (occurrence: None)
  Receive Date: 20100128
  Receipt Date: 20100118
  Transmission Date: 20100710
  Serious: Yes (Other)
  Sender: FDA-Public Use
  Company Number: US-ABBOTT-10P-163-0619693-00

PATIENT
  Sex: Female
  Weight: 61.29 kg

DRUGS (2)
  1. HUMIRA [Suspect]
     Indication: CROHN'S DISEASE
     Dates: start: 20080101, end: 20091201
  2. HUMIRA [Suspect]
     Route: 058
     Dates: start: 20091201

REACTIONS (5)
  - ANAEMIA [None]
  - CROHN'S DISEASE [None]
  - DIZZINESS [None]
  - DYSPNOEA [None]
  - INJECTION SITE PAIN [None]
